FAERS Safety Report 11180229 (Version 1)
Quarter: 2015Q2

REPORT INFORMATION
  Report Type: Spontaneous
  Country: US (occurrence: US)
  Receive Date: 20150611
  Receipt Date: 20150611
  Transmission Date: 20150821
  Serious: Yes (Hospitalization, Other)
  Sender: FDA-Public Use
  Company Number: US-JNJFOC-20150601577

PATIENT
  Sex: Male

DRUGS (1)
  1. INVEGA SUSTENNA [Suspect]
     Active Substance: PALIPERIDONE PALMITATE
     Indication: PRODUCT USED FOR UNKNOWN INDICATION
     Route: 030

REACTIONS (6)
  - Drug ineffective [Not Recovered/Not Resolved]
  - Akathisia [Not Recovered/Not Resolved]
  - Mental impairment [Recovering/Resolving]
  - Hospitalisation [Unknown]
  - Anxiety [Not Recovered/Not Resolved]
  - Parkinsonism [Not Recovered/Not Resolved]
